FAERS Safety Report 23138851 (Version 1)
Quarter: 2023Q4

REPORT INFORMATION
  Report Type: Report from Study
  Country: US (occurrence: US)
  Receive Date: 20231102
  Receipt Date: 20231102
  Transmission Date: 20240110
  Serious: Yes (Other)
  Sender: FDA-Public Use
  Company Number: US-SEATTLE GENETICS-2023SGN08751

PATIENT
  Age: 40 Year
  Sex: Female
  Weight: 89.9 kg

DRUGS (11)
  1. TUCATINIB [Suspect]
     Active Substance: TUCATINIB
     Indication: Invasive breast carcinoma
     Dosage: 150 MG, BID
     Route: 048
     Dates: start: 20230724, end: 20230728
  2. TUCATINIB [Suspect]
     Active Substance: TUCATINIB
     Indication: Invasive breast carcinoma
     Dosage: 150 MG, BID
     Route: 048
     Dates: start: 20230724, end: 20230728
  3. TUCATINIB [Suspect]
     Active Substance: TUCATINIB
     Dosage: 150 MG, SINGLE
     Route: 048
     Dates: start: 20230729
  4. TUCATINIB [Suspect]
     Active Substance: TUCATINIB
     Dosage: 150 MG, SINGLE
     Route: 048
     Dates: start: 20230729
  5. ADO-TRASTUZUMAB EMTANSINE [Suspect]
     Active Substance: ADO-TRASTUZUMAB EMTANSINE
     Indication: Invasive breast carcinoma
     Dosage: 280 MG
     Route: 065
     Dates: start: 20230724
  6. BUPROPION [Concomitant]
     Active Substance: BUPROPION
  7. CHOLECALCIFEROL [Concomitant]
     Active Substance: CHOLECALCIFEROL
  8. CHOLESTYRAMINE [Concomitant]
     Active Substance: CHOLESTYRAMINE
  9. FAMOTIDINE [Concomitant]
     Active Substance: FAMOTIDINE
  10. LORAZEPAM [Concomitant]
     Active Substance: LORAZEPAM
  11. PROCHLORPERAZINE [Concomitant]
     Active Substance: PROCHLORPERAZINE

REACTIONS (4)
  - Platelet count decreased [Recovered/Resolved]
  - Hypokalaemia [Recovered/Resolved]
  - Nausea [Recovered/Resolved]
  - Vomiting [Recovered/Resolved]

NARRATIVE: CASE EVENT DATE: 20230730
